FAERS Safety Report 15991288 (Version 1)
Quarter: 2019Q1

REPORT INFORMATION
  Report Type: Spontaneous
  Country: FR (occurrence: FR)
  Receive Date: 20190221
  Receipt Date: 20190221
  Transmission Date: 20190418
  Serious: Yes (Hospitalization)
  Sender: FDA-Public Use
  Company Number: FR-PFIZER INC-2019072299

PATIENT
  Age: 34 Year
  Sex: Female
  Weight: 105 kg

DRUGS (4)
  1. PARACETAMOL [Concomitant]
     Active Substance: ACETAMINOPHEN
     Dosage: UNK
     Route: 048
     Dates: start: 20181209
  2. IBUPROFEN. [Suspect]
     Active Substance: IBUPROFEN
     Dosage: 2 DF, SINGLE
     Route: 048
     Dates: start: 20181209, end: 20181209
  3. OXYTOCINE [Concomitant]
     Dosage: UNK
     Route: 042
     Dates: start: 20181207, end: 20181207
  4. SPASFON [PHLOROGLUCINOL;TRIMETHYLPHLOROGLUCINOL] [Concomitant]
     Active Substance: PHLOROGLUCINOL\1,3,5-TRIMETHOXYBENZENE
     Dosage: UNK
     Route: 048
     Dates: start: 20181209, end: 20181209

REACTIONS (3)
  - Upper gastrointestinal perforation [Recovered/Resolved]
  - Pneumoperitoneum [Recovered/Resolved]
  - Abdominal pain [Recovered/Resolved]

NARRATIVE: CASE EVENT DATE: 20181209
